FAERS Safety Report 24771996 (Version 4)
Quarter: 2025Q1

REPORT INFORMATION
  Report Type: Spontaneous
  Country: US (occurrence: US)
  Receive Date: 20241224
  Receipt Date: 20250301
  Transmission Date: 20250409
  Serious: No
  Sender: SANOFI AVENTIS
  Company Number: US-SA-2024SA378538

PATIENT
  Age: 12 Year
  Sex: Male
  Weight: 46.59 kg

DRUGS (2)
  1. DUPIXENT [Suspect]
     Active Substance: DUPILUMAB
     Indication: Dermatitis atopic
     Dosage: 200 MG, QOW
     Route: 058
  2. MONTELUKAST SODIUM [Concomitant]
     Active Substance: MONTELUKAST SODIUM

REACTIONS (9)
  - Ear infection [Unknown]
  - Cough [Unknown]
  - Influenza [Recovering/Resolving]
  - Pharyngitis streptococcal [Recovering/Resolving]
  - Dry skin [Unknown]
  - Product dose omission issue [Unknown]
  - Erythema [Unknown]
  - Nasopharyngitis [Unknown]
  - Pruritus [Unknown]

NARRATIVE: CASE EVENT DATE: 20240101
